FAERS Safety Report 8728321 (Version 2)
Quarter: 2012Q4

REPORT INFORMATION
  Report Type: 
  Country: US (occurrence: US)
  Receive Date: 20120817
  Receipt Date: 20121018
  Transmission Date: 20130627
  Serious: Yes (Hospitalization)
  Sender: FDA-Public Use
  Company Number: US-BAYER-2012-082624

PATIENT
  Age: 35 Year
  Sex: Female
  Weight: 73.47 kg

DRUGS (5)
  1. YAZ [Suspect]
     Indication: ACNE
     Dosage: UNK
     Dates: start: 20090430, end: 20091021
  2. OCELLA [Suspect]
     Indication: ACNE
     Dosage: UNK
     Dates: start: 20090430, end: 20091021
  3. ALEVE [Concomitant]
  4. EXCEDRIN MIGRAINE [Concomitant]
  5. ANTIBIOTICS [Concomitant]

REACTIONS (5)
  - Pain [None]
  - Pain [None]
  - Cholelithiasis [None]
  - Biliary colic [None]
  - Cholecystitis acute [None]
